FAERS Safety Report 19305194 (Version 1)
Quarter: 2021Q2

REPORT INFORMATION
  Report Type: Report from Study
  Country: TW (occurrence: TW)
  Receive Date: 20210525
  Receipt Date: 20210525
  Transmission Date: 20210717
  Serious: Yes (Hospitalization)
  Sender: FDA-Public Use
  Company Number: TW-ASTRAZENECA-2021A443838

PATIENT
  Age: 61 Year
  Sex: Male

DRUGS (1)
  1. IMFINZI [Suspect]
     Active Substance: DURVALUMAB
     Indication: TRANSITIONAL CELL CARCINOMA
     Route: 042
     Dates: start: 20210504

REACTIONS (5)
  - Dysuria [Unknown]
  - Liver function test increased [Unknown]
  - Haemorrhage urinary tract [Unknown]
  - Cystitis noninfective [Unknown]
  - Tumour compression [Unknown]

NARRATIVE: CASE EVENT DATE: 20210511
